FAERS Safety Report 9831957 (Version 2)
Quarter: 2020Q3

REPORT INFORMATION
  Report Type: Report from Study
  Country: US (occurrence: US)
  Receive Date: 20140121
  Receipt Date: 20140220
  Transmission Date: 20201104
  Serious: Yes (Hospitalization, Other)
  Sender: FDA-Public Use
  Company Number: US-ASTELLAS-2014US000407

PATIENT
  Age: 56 Year
  Sex: Female

DRUGS (4)
  1. AKT_INHIBITOR_MK2206 [Suspect]
     Active Substance: INVESTIGATIONAL PRODUCT
     Indication: NON-SMALL CELL LUNG CANCER
     Dosage: UNK
     Route: 065
  2. SORAFENIB [Suspect]
     Active Substance: SORAFENIB
     Indication: NON-SMALL CELL LUNG CANCER
     Dosage: 400 MG, UNKNOWN/D
     Route: 048
     Dates: start: 20131228
  3. SELUMETINIB. [Suspect]
     Active Substance: SELUMETINIB
     Indication: NON-SMALL CELL LUNG CANCER
     Dosage: UNK
     Route: 065
  4. [NO SUSPECT PRODUCT] [Suspect]
     Active Substance: UNSPECIFIED INGREDIENT
     Indication: NON-SMALL CELL LUNG CANCER
     Dosage: UNK
     Route: 065

REACTIONS (10)
  - Nausea [Unknown]
  - Pleural effusion [Unknown]
  - Vomiting [Unknown]
  - Cholelithiasis [Unknown]
  - Dyspnoea [Unknown]
  - Cough [Unknown]
  - Malignant neoplasm progression [Unknown]
  - Abdominal pain [Unknown]
  - Arthralgia [None]
  - Hypophagia [Unknown]
